FAERS Safety Report 24051822 (Version 4)
Quarter: 2024Q3

REPORT INFORMATION
  Report Type: Spontaneous
  Country: US (occurrence: US)
  Receive Date: 20240704
  Receipt Date: 20240902
  Transmission Date: 20241017
  Serious: No
  Sender: BOEHRINGER INGELHEIM
  Company Number: US-BoehringerIngelheim-2024-BI-037858

PATIENT
  Age: 43 Year
  Sex: Female

DRUGS (5)
  1. SPEVIGO [Suspect]
     Active Substance: SPESOLIMAB-SBZO
     Indication: Generalised pustular psoriasis
     Route: 042
     Dates: start: 20240703
  2. SPEVIGO [Suspect]
     Active Substance: SPESOLIMAB-SBZO
     Route: 042
     Dates: start: 20240719
  3. SPEVIGO [Suspect]
     Active Substance: SPESOLIMAB-SBZO
     Dosage: TWO
     Route: 058
     Dates: start: 20240817
  4. BIMZELX [Suspect]
     Active Substance: BIMEKIZUMAB-BKZX
     Indication: Product used for unknown indication
  5. SOLU-MEDROL [Concomitant]
     Active Substance: METHYLPREDNISOLONE SODIUM SUCCINATE
     Indication: Product used for unknown indication

REACTIONS (4)
  - Hypotension [Unknown]
  - Urinary tract infection [Recovering/Resolving]
  - Pruritus [Recovering/Resolving]
  - Flank pain [Unknown]

NARRATIVE: CASE EVENT DATE: 20240703
